FAERS Safety Report 5948653-0 (Version None)
Quarter: 2008Q4

REPORT INFORMATION
  Report Type: 
  Country: None (occurrence: None)
  Receive Date: 20081111
  Receipt Date: 20081028
  Transmission Date: 20090506
  Serious: Yes (Other)
  Sender: FDA-Public Use
  Company Number: US-ELI_LILLY_AND_COMPANY-US200810007211

PATIENT
  Age: 45 Year
  Sex: Female

DRUGS (4)
  1. FORTEO [Suspect]
     Dosage: 20 UG, UNK
     Dates: start: 20080801, end: 20080901
  2. CALCIUM [Concomitant]
     Dosage: 600 MG, 2/D
  3. VITAMIN D [Concomitant]
     Dosage: 400 IU, DAILY (1/D)
  4. ACTONEL [Concomitant]

REACTIONS (4)
  - ARTHRITIS [None]
  - BLOOD CALCIUM INCREASED [None]
  - BLOOD MAGNESIUM DECREASED [None]
  - FRACTURE [None]
